FAERS Safety Report 23778975 (Version 1)
Quarter: 2024Q2

REPORT INFORMATION
  Report Type: Spontaneous
  Country: US (occurrence: None)
  Receive Date: 20240424
  Receipt Date: 20240424
  Transmission Date: 20240716
  Serious: Yes (Hospitalization)
  Sender: FDA-Public Use
  Company Number: None

PATIENT
  Age: 61 Year
  Sex: Male
  Weight: 71.6 kg

DRUGS (3)
  1. ALOGLIPTIN [Suspect]
     Active Substance: ALOGLIPTIN
     Indication: Diabetes mellitus
     Dosage: 1  TAB EVERY DAY PO?
     Route: 048
     Dates: start: 20230317, end: 20230415
  2. TRAZODONE HCL [Suspect]
     Active Substance: TRAZODONE HYDROCHLORIDE
     Indication: Depression
     Dosage: 50 MG PRN PO??THERAPY STOPPED ON : 04/15/202?
     Route: 048
     Dates: start: 20230313
  3. ATORVASTATIN [Suspect]
     Active Substance: ATORVASTATIN

REACTIONS (4)
  - Drug-induced liver injury [None]
  - Rash [None]
  - Alcohol use [None]
  - Autoimmune disorder [None]

NARRATIVE: CASE EVENT DATE: 20230415
